FAERS Safety Report 5496625-5 (Version None)
Quarter: 2007Q4

REPORT INFORMATION
  Report Type: 
  Country: None (occurrence: None)
  Receive Date: 20071025
  Receipt Date: 20070626
  Transmission Date: 20080405
  Serious: No
  Sender: FDA-Public Use
  Company Number: A0660251A

PATIENT
  Age: 72 Year
  Sex: Female

DRUGS (5)
  1. ADVAIR DISKUS 100/50 [Suspect]
     Indication: ASTHMA
     Dosage: 1PUFF TWICE PER DAY
     Route: 055
     Dates: start: 20050101
  2. BENICAR [Concomitant]
  3. ALLOPURINOL [Concomitant]
  4. TEKTURNA [Concomitant]
  5. RANITIDINE HCL [Concomitant]

REACTIONS (2)
  - DYSPHONIA [None]
  - PHARMACEUTICAL PRODUCT COMPLAINT [None]
